FAERS Safety Report 7237808-3 (Version None)
Quarter: 2011Q1

REPORT INFORMATION
  Report Type: 
  Country: None (occurrence: None)
  Receive Date: 20110121
  Receipt Date: 20110111
  Transmission Date: 20110831
  Serious: Yes (Disabling)
  Sender: FDA-Public Use
  Company Number: GB-ROCHE-752553

PATIENT
  Age: 16 Year
  Sex: Male

DRUGS (1)
  1. TAMIFLU [Suspect]
     Route: 048
     Dates: start: 20101223, end: 20101224

REACTIONS (2)
  - HALLUCINATION [None]
  - ABNORMAL BEHAVIOUR [None]
